FAERS Safety Report 8935028 (Version 1)
Quarter: 2012Q4

REPORT INFORMATION
  Report Type: 
  Country: US (occurrence: US)
  Receive Date: 20121129
  Receipt Date: 20121129
  Transmission Date: 20130627
  Serious: Yes (Other)
  Sender: FDA-Public Use
  Company Number: US-JNJFOC-20121113231

PATIENT
  Age: 47 Year
  Sex: Female

DRUGS (5)
  1. ULTRAM [Suspect]
     Indication: MUSCULOSKELETAL PAIN
     Route: 065
  2. ULTRAM [Suspect]
     Indication: MUSCULOSKELETAL PAIN
     Route: 065
  3. BENADRYL [Suspect]
     Indication: INSOMNIA
     Route: 065
  4. PREVACID [Suspect]
     Indication: UNEVALUABLE EVENT
     Route: 065
  5. EXCEDRIN [Suspect]
     Indication: HEADACHE
     Route: 065

REACTIONS (2)
  - Hepatotoxicity [Unknown]
  - Overdose [Unknown]
